FAERS Safety Report 5748965-X (Version None)
Quarter: 2008Q2

REPORT INFORMATION
  Report Type: 
  Country: None (occurrence: None)
  Receive Date: 20080527
  Receipt Date: 20080521
  Transmission Date: 20081010
  Serious: Yes (Other)
  Sender: FDA-Public Use
  Company Number: GB-RANBAXY-2008RR-15365

PATIENT

DRUGS (2)
  1. LORATADINE 10MG TABLETS [Suspect]
     Indication: SEASONAL ALLERGY
     Dosage: 10 MG, QD
     Route: 048
     Dates: start: 20080426, end: 20080427
  2. MEDROXYPROGESTERONE ACETATE [Concomitant]
     Route: 042

REACTIONS (2)
  - AGGRESSION [None]
  - SUICIDAL IDEATION [None]
